FAERS Safety Report 5524455-4 (Version None)
Quarter: 2007Q4

REPORT INFORMATION
  Report Type: 
  Country: None (occurrence: None)
  Receive Date: 20071122
  Receipt Date: 20071113
  Transmission Date: 20080405
  Serious: Yes (Hospitalization)
  Sender: FDA-Public Use
  Company Number: PHHO2007BE18831

PATIENT
  Age: 56 Year
  Sex: Female
  Weight: 57.8 kg

DRUGS (1)
  1. AMN107 [Suspect]
     Indication: CHRONIC MYELOID LEUKAEMIA
     Dosage: 800 MG, UNK
     Route: 048
     Dates: start: 20070926, end: 20071031

REACTIONS (3)
  - FEBRILE NEUTROPENIA [None]
  - PERIODONTITIS [None]
  - TOOTH ABSCESS [None]
